FAERS Safety Report 6804869-2 (Version None)
Quarter: 2010Q2

REPORT INFORMATION
  Report Type: 
  Country: None (occurrence: None)
  Receive Date: 20100628
  Receipt Date: 20070622
  Transmission Date: 20101027
  Serious: No
  Sender: FDA-Public Use
  Company Number: US-PFIZER INC-2007051940

PATIENT
  Sex: Male
  Weight: 90.72 kg

DRUGS (1)
  1. GENOTROPIN [Suspect]
     Indication: PITUITARY TUMOUR

REACTIONS (2)
  - ABNORMAL BEHAVIOUR [None]
  - WITHDRAWAL SYNDROME [None]
